FAERS Safety Report 16624498 (Version 3)
Quarter: 2019Q4

REPORT INFORMATION
  Report Type: Spontaneous
  Country: DE (occurrence: DE)
  Receive Date: 20190724
  Receipt Date: 20191111
  Transmission Date: 20200122
  Serious: Yes (Life-Threatening, Other)
  Sender: FDA-Public Use
  Company Number: DE-AUROBINDO-AUR-APL-2019-041485

PATIENT
  Age: 26 Year
  Sex: Female

DRUGS (3)
  1. RAMIPRIL. [Suspect]
     Active Substance: RAMIPRIL
     Indication: CARDIAC FAILURE CONGESTIVE
     Dosage: 5 MILLIGRAM, ONCE A DAY
     Route: 065
  2. METOPROLOL. [Suspect]
     Active Substance: METOPROLOL
     Indication: CARDIAC FAILURE CONGESTIVE
     Dosage: UNK
     Route: 065
  3. LEVOSIMENDAN [Suspect]
     Active Substance: LEVOSIMENDAN
     Indication: PRODUCT USED FOR UNKNOWN INDICATION
     Dosage: UNK,24-HOUR
     Route: 065

REACTIONS (2)
  - Fibrinous bronchitis [Recovered/Resolved]
  - Productive cough [Unknown]
